FAERS Safety Report 12115096 (Version 1)
Quarter: 2016Q1

REPORT INFORMATION
  Report Type: Spontaneous
  Country: US (occurrence: None)
  Receive Date: 20160224
  Receipt Date: 20160224
  Transmission Date: 20160526
  Serious: Yes (Disabling)
  Sender: FDA-Public Use
  Company Number: None

PATIENT
  Age: 91 Year
  Sex: Female
  Weight: 65.32 kg

DRUGS (8)
  1. IBUPROPHEN [Concomitant]
     Active Substance: IBUPROFEN
  2. ACIPHEX [Concomitant]
     Active Substance: RABEPRAZOLE SODIUM
  3. ULTRACET [Suspect]
     Active Substance: ACETAMINOPHEN\TRAMADOL HYDROCHLORIDE
     Indication: MUSCULOSKELETAL PAIN
     Dosage: 37.5 - 325MG 1 TABLET EVRY 6 HOURS MOUTH
     Route: 048
     Dates: start: 20160208, end: 20160209
  4. VITRON C [Concomitant]
     Active Substance: DIETARY SUPPLEMENT
  5. VITAMIN B12 [Concomitant]
     Active Substance: CYANOCOBALAMIN
  6. ZIAC [Concomitant]
     Active Substance: BISOPROLOL FUMARATE\HYDROCHLOROTHIAZIDE
  7. CALCIUM [Concomitant]
     Active Substance: CALCIUM
  8. VITAMIN D [Concomitant]
     Active Substance: CHOLECALCIFEROL

REACTIONS (6)
  - Wrong drug administered [None]
  - Musculoskeletal pain [None]
  - Product packaging confusion [None]
  - Drug dispensing error [None]
  - Condition aggravated [None]
  - Headache [None]

NARRATIVE: CASE EVENT DATE: 20160208
